FAERS Safety Report 7562635-7 (Version None)
Quarter: 2011Q2

REPORT INFORMATION
  Report Type: 
  Country: None (occurrence: None)
  Receive Date: 20110622
  Receipt Date: 20110610
  Transmission Date: 20111010
  Serious: Yes (Other)
  Sender: FDA-Public Use
  Company Number: US-JNJFOC-20110102705

PATIENT
  Sex: Male
  Weight: 65.77 kg

DRUGS (20)
  1. FENTANYL-100 [Suspect]
     Indication: ARTHRALGIA
     Dosage: NDC#: 0781-7242-55
     Route: 062
     Dates: start: 20100101
  2. FENTANYL-100 [Suspect]
     Route: 062
     Dates: end: 20110101
  3. FENTANYL-100 [Suspect]
     Route: 062
     Dates: end: 20110101
  4. FENTANYL-100 [Suspect]
     Dosage: NDC#: 0781-7241-55
     Route: 062
  5. TRAMADOL HCL [Concomitant]
     Indication: BREAKTHROUGH PAIN
     Route: 048
  6. DURAGESIC-100 [Suspect]
     Indication: PAIN
     Route: 062
     Dates: start: 20100101, end: 20110501
  7. DURAGESIC-100 [Suspect]
     Route: 062
     Dates: start: 20090101, end: 20100101
  8. FENTANYL-100 [Suspect]
     Indication: BACK PAIN
     Route: 062
  9. FENTANYL-100 [Suspect]
     Indication: BACK PAIN
     Route: 062
     Dates: start: 20110101
  10. FENTANYL-100 [Suspect]
     Indication: ARTHRALGIA
     Route: 062
     Dates: start: 20090101, end: 20100101
  11. FENTANYL-100 [Suspect]
     Dosage: NDC#: 0781-7242-55
     Route: 062
     Dates: start: 20100101
  12. FENTANYL-100 [Suspect]
     Route: 062
  13. FENTANYL-100 [Suspect]
     Route: 062
  14. FENTANYL-100 [Suspect]
     Dosage: NDC#: 0781-7241-55
     Route: 062
  15. TRAMADOL HCL [Concomitant]
     Dosage: AS NEEDED
     Route: 048
     Dates: start: 20090101
  16. FENTANYL-100 [Suspect]
     Route: 062
     Dates: start: 20110101
  17. DURAGESIC-100 [Suspect]
     Route: 062
     Dates: start: 20110601
  18. FENTANYL-100 [Suspect]
     Route: 062
     Dates: start: 20090101, end: 20100101
  19. DURAGESIC-100 [Suspect]
     Route: 062
     Dates: start: 20110501, end: 20110601
  20. FENTANYL-100 [Suspect]
     Route: 062

REACTIONS (13)
  - HYPOTENSION [None]
  - ADVERSE EVENT [None]
  - CONSTIPATION [None]
  - FEELING ABNORMAL [None]
  - RENAL FAILURE ACUTE [None]
  - INSOMNIA [None]
  - WEIGHT INCREASED [None]
  - MUSCLE TWITCHING [None]
  - OSTEOARTHRITIS [None]
  - ABNORMAL BEHAVIOUR [None]
  - WITHDRAWAL SYNDROME [None]
  - PRODUCT QUALITY ISSUE [None]
  - SEPSIS [None]
